FAERS Safety Report 7366393-0 (Version None)
Quarter: 2011Q1

REPORT INFORMATION
  Report Type: 
  Country: None (occurrence: None)
  Receive Date: 20110322
  Receipt Date: 20110317
  Transmission Date: 20110831
  Serious: Yes (Other)
  Sender: FDA-Public Use
  Company Number: DE-BRISTOL-MYERS SQUIBB COMPANY-14448831

PATIENT
  Age: 57 Year
  Sex: Male
  Weight: 82 kg

DRUGS (10)
  1. FLUOROURACIL [Suspect]
     Indication: COLORECTAL CANCER
     Dosage: ALSO 4640MG,1 IN 2WK,INTRAVENOUS, FIRST INF:12NOV08,LAST INFU:10DEC2008-ONGOING,5410MG 1IN2WEEKS.
     Route: 040
     Dates: start: 20081112
  2. PANTOZOL [Concomitant]
     Route: 048
     Dates: start: 20081201
  3. FOLINIC ACID [Suspect]
     Indication: COLORECTAL CANCER
     Dosage: LAST INFUSION BEFORE EVENT WAS 10DEC2008,770MG 1 IN 2 WEEKS.
     Route: 042
     Dates: start: 20081112
  4. BELOC-ZOK [Concomitant]
     Route: 048
     Dates: start: 20080101
  5. FORTECORTIN [Concomitant]
     Route: 042
     Dates: start: 20081112
  6. FENISTIL [Concomitant]
     Route: 042
     Dates: start: 20081112
  7. CETUXIMAB [Suspect]
     Indication: COLORECTAL CANCER
     Dosage: LAST INFUSION BEFORE EVENT WAS 10DEC2008,480MG 1 IN 1 WEEK.
     Route: 042
     Dates: start: 20081112
  8. IRINOTECAN HYDROCHLORIDE [Suspect]
     Indication: COLORECTAL CANCER
     Dosage: LAST INFUSION BEFORE EVENT WAS 10DEC2008,350 1 IN 1 WEEK.
     Route: 042
     Dates: start: 20081112
  9. ZOFRAN [Concomitant]
     Route: 042
     Dates: start: 20081112
  10. ATROPINE [Concomitant]
     Route: 042
     Dates: start: 20081112

REACTIONS (1)
  - DEEP VEIN THROMBOSIS [None]
